FAERS Safety Report 6095068-3 (Version None)
Quarter: 2009Q1

REPORT INFORMATION
  Report Type: 
  Country: None (occurrence: None)
  Receive Date: 20090227
  Receipt Date: 20080111
  Transmission Date: 20090719
  Serious: No
  Sender: FDA-Public Use
  Company Number: A0702756A

PATIENT
  Age: 45 Year
  Sex: Female

DRUGS (4)
  1. LAMICTAL [Suspect]
     Dosage: 200MG PER DAY
     Route: 048
     Dates: start: 20071101
  2. EFFEXOR [Concomitant]
  3. TRAZODONE HCL [Concomitant]
  4. WELLBUTRIN [Concomitant]

REACTIONS (3)
  - HYPOAESTHESIA FACIAL [None]
  - PAIN IN EXTREMITY [None]
  - PAIN IN JAW [None]
